FAERS Safety Report 23689542 (Version 2)
Quarter: 2024Q2

REPORT INFORMATION
  Report Type: Report from Study
  Country: US (occurrence: US)
  Receive Date: 20240331
  Receipt Date: 20240402
  Transmission Date: 20240716
  Serious: Yes (Other)
  Sender: FDA-Public Use
  Company Number: US-JNJFOC-20240367184

PATIENT
  Age: 98 Year
  Sex: Male

DRUGS (14)
  1. ERLEADA [Suspect]
     Active Substance: APALUTAMIDE
     Indication: Prostate cancer
     Route: 048
  2. ABIRATERONE [Concomitant]
     Active Substance: ABIRATERONE
  3. ASPIRIN [Concomitant]
     Active Substance: ASPIRIN
  4. BICALUTAMIDE [Concomitant]
     Active Substance: BICALUTAMIDE
  5. CYANOCOBALAMIN [Concomitant]
     Active Substance: CYANOCOBALAMIN
  6. ELIGARD [Concomitant]
     Active Substance: LEUPROLIDE ACETATE
  7. ELIQUIS [Concomitant]
     Active Substance: APIXABAN
  8. FERAHEME [Concomitant]
     Active Substance: FERUMOXYTOL NON-STOICHIOMETRIC MAGNETITE
  9. GLIPIZIDE [Concomitant]
     Active Substance: GLIPIZIDE
  10. METFORMIN [Concomitant]
     Active Substance: METFORMIN HYDROCHLORIDE
  11. PREDNISONE [Concomitant]
     Active Substance: PREDNISONE
  12. PROPAFENONE [Concomitant]
     Active Substance: PROPAFENONE
  13. ROSUVASTATIN [Concomitant]
     Active Substance: ROSUVASTATIN
  14. XTANDI [Concomitant]
     Active Substance: ENZALUTAMIDE

REACTIONS (1)
  - Blood pressure abnormal [Recovered/Resolved with Sequelae]

NARRATIVE: CASE EVENT DATE: 20240101
